FAERS Safety Report 14789980 (Version 5)
Quarter: 2019Q2

REPORT INFORMATION
  Report Type: Spontaneous
  Country: US (occurrence: US)
  Receive Date: 20180423
  Receipt Date: 20190403
  Transmission Date: 20190711
  Serious: Yes (Other)
  Sender: FDA-Public Use
  Company Number: US-ASTRAZENECA-2018SE49236

PATIENT
  Sex: Male

DRUGS (13)
  1. DEXILANT [Suspect]
     Active Substance: DEXLANSOPRAZOLE
     Route: 065
  2. HYDROCHLOROTHIAZIDE. [Concomitant]
     Active Substance: HYDROCHLOROTHIAZIDE
  3. NEXIUM 24HR [Suspect]
     Active Substance: ESOMEPRAZOLE MAGNESIUM
     Route: 048
  4. PRILOSEC [Suspect]
     Active Substance: OMEPRAZOLE MAGNESIUM
     Route: 048
  5. AMLODIPINE [Concomitant]
     Active Substance: AMLODIPINE BESYLATE
  6. PREVACID [Suspect]
     Active Substance: LANSOPRAZOLE
     Route: 065
  7. CHLORTHALIDONE. [Concomitant]
     Active Substance: CHLORTHALIDONE
  8. PROTONIX [Suspect]
     Active Substance: PANTOPRAZOLE SODIUM
     Route: 065
  9. PRILOSEC OTC [Suspect]
     Active Substance: OMEPRAZOLE MAGNESIUM
     Route: 048
  10. PREVACID 24 HR [Suspect]
     Active Substance: LANSOPRAZOLE
     Route: 065
  11. METHYLPREDNISOLONE. [Concomitant]
     Active Substance: METHYLPREDNISOLONE
  12. NEXIUM [Suspect]
     Active Substance: ESOMEPRAZOLE MAGNESIUM
     Dosage: VARIOUS YEARS AND DATES INCLUDING BEGINNING IN 2006 OR EARLIER
     Route: 048
  13. LISINOPRIL. [Concomitant]
     Active Substance: LISINOPRIL

REACTIONS (4)
  - Renal failure [Unknown]
  - Renal injury [Unknown]
  - Chronic kidney disease [Unknown]
  - Rebound acid hypersecretion [Unknown]
